FAERS Safety Report 9008690 (Version 2)
Quarter: 2015Q1

REPORT INFORMATION
  Report Type: Report from Study
  Country: US (occurrence: US)
  Receive Date: 20130111
  Receipt Date: 20150319
  Transmission Date: 20150721
  Serious: Yes (Death)
  Sender: FDA-Public Use
  Company Number: US-ROCHE-1178670

PATIENT
  Sex: Male

DRUGS (2)
  1. XELODA [Suspect]
     Active Substance: CAPECITABINE
     Indication: RECTOSIGMOID CANCER
     Dosage: 3 TABLETS B.I.D-14DAYS, 7 DAY OFF
     Route: 048
  2. CAMPTOSAR [Concomitant]
     Active Substance: IRINOTECAN HYDROCHLORIDE

REACTIONS (1)
  - Death [Fatal]
